FAERS Safety Report 10711455 (Version 2)
Quarter: 2015Q1

REPORT INFORMATION
  Report Type: Spontaneous
  Country: IT (occurrence: IT)
  Receive Date: 20150114
  Receipt Date: 20150116
  Transmission Date: 20150721
  Serious: Yes (Hospitalization)
  Sender: FDA-Public Use
  Company Number: IT-PFIZER INC-2015010105

PATIENT
  Age: 83 Year
  Sex: Male

DRUGS (5)
  1. ALPRAZOLAM. [Suspect]
     Active Substance: ALPRAZOLAM
     Dosage: 20 ML, TOTAL (1 BOTTLE)
     Route: 048
     Dates: start: 20141210, end: 20141210
  2. TOTALIP [Concomitant]
     Active Substance: ATORVASTATIN
     Dosage: 20 MG, UNK
     Route: 048
  3. NORVASC [Concomitant]
     Active Substance: AMLODIPINE BESYLATE
     Dosage: 5 MG, UNK
     Route: 048
  4. TRIATEC [Concomitant]
     Active Substance: RAMIPRIL
     Dosage: 5 MG, UNK
     Route: 048
  5. SINTROM [Suspect]
     Active Substance: ACENOCOUMAROL
     Dosage: 5 TABLETS (DOSAGE FORM STRENGTH 1 MG) TOTAL
     Route: 048
     Dates: start: 20141210, end: 20141210

REACTIONS (6)
  - Intentional overdose [Unknown]
  - Suicide attempt [Unknown]
  - Drug abuse [Unknown]
  - Drop attacks [Unknown]
  - Sopor [Unknown]
  - Head injury [Unknown]

NARRATIVE: CASE EVENT DATE: 20141210
